FAERS Safety Report 13521260 (Version 1)
Quarter: 2017Q2

REPORT INFORMATION
  Report Type: Spontaneous
  Country: US (occurrence: US)
  Receive Date: 20170508
  Receipt Date: 20170508
  Transmission Date: 20170830
  Serious: No
  Sender: FDA-Public Use
  Company Number: US-PFIZER INC-2017193175

PATIENT
  Age: 69 Year
  Sex: Female
  Weight: 76.2 kg

DRUGS (1)
  1. IBUPROFEN. [Suspect]
     Active Substance: IBUPROFEN
     Indication: INFLAMMATION
     Dosage: 1200 MG, DAILY(IN MORNING)

REACTIONS (3)
  - Intentional product misuse [Unknown]
  - Nausea [Unknown]
  - Abdominal pain upper [Unknown]
